FAERS Safety Report 12579818 (Version 1)
Quarter: 2016Q3

REPORT INFORMATION
  Report Type: Spontaneous
  Country: PT (occurrence: PT)
  Receive Date: 20160721
  Receipt Date: 20160721
  Transmission Date: 20161109
  Serious: Yes (Other)
  Sender: FDA-Public Use
  Company Number: PT-PFIZER INC-2016352711

PATIENT
  Age: 73 Year
  Sex: Female

DRUGS (3)
  1. CORDARONE [Suspect]
     Active Substance: AMIODARONE HYDROCHLORIDE
     Indication: ARRHYTHMIA
     Dosage: 200 MG, DAILY
     Route: 048
  2. AZOPT [Concomitant]
     Active Substance: BRINZOLAMIDE
     Dosage: UNK
  3. OCULOTECT [Concomitant]
     Dosage: UNK

REACTIONS (3)
  - Pharyngeal oedema [Recovering/Resolving]
  - Lip oedema [Recovering/Resolving]
  - Erythema [Recovering/Resolving]
